FAERS Safety Report 6107326-4 (Version None)
Quarter: 2009Q1

REPORT INFORMATION
  Report Type: 
  Country: None (occurrence: None)
  Receive Date: 20090309
  Receipt Date: 20090205
  Transmission Date: 20090719
  Serious: No
  Sender: FDA-Public Use
  Company Number: US-BAYER-200912141NA

PATIENT
  Age: 80 Year
  Sex: Female

DRUGS (7)
  1. CIPROFLOXACIN HCL [Suspect]
     Indication: CYSTITIS
     Dates: start: 20080101
  2. SANCTURA XR [Concomitant]
     Indication: HYPERTONIC BLADDER
     Dates: start: 20081022
  3. AMLODIPINE [Concomitant]
  4. SYNTHROID [Concomitant]
  5. OMEPRAZOLE [Concomitant]
     Indication: GASTROOESOPHAGEAL REFLUX DISEASE
  6. ADVAIR HFA [Concomitant]
  7. TRAMADOL [Concomitant]
     Indication: PAIN

REACTIONS (1)
  - CYSTITIS [None]
